FAERS Safety Report 4854553-X (Version None)
Quarter: 2005Q4

REPORT INFORMATION
  Report Type: 
  Country: None (occurrence: None)
  Receive Date: 20051215
  Receipt Date: 20050929
  Transmission Date: 20060501
  Serious: Yes (Life-Threatening)
  Sender: FDA-Public Use
  Company Number: JP-ROCHE-419490

PATIENT
  Age: 55 Year
  Sex: Male
  Weight: 63 kg

DRUGS (4)
  1. ROCEPHIN [Suspect]
     Indication: PYREXIA
     Dosage: CLARIFIED AS ROCEPHIN 1 GRAM BAG
     Route: 041
     Dates: start: 20050716, end: 20050716
  2. VOLTAREN [Concomitant]
     Route: 054
     Dates: start: 20050716, end: 20050716
  3. CRAVIT [Concomitant]
     Route: 048
     Dates: start: 20050716, end: 20050716
  4. PINORUBIN [Concomitant]
     Route: 043
     Dates: start: 20050623, end: 20050714

REACTIONS (9)
  - ANAPHYLACTIC REACTION [None]
  - DISSEMINATED INTRAVASCULAR COAGULATION [None]
  - LIVER DISORDER [None]
  - LYMPHOCYTE STIMULATION TEST POSITIVE [None]
  - OCULOMUCOCUTANEOUS SYNDROME [None]
  - RENAL FAILURE [None]
  - SEPSIS [None]
  - SHOCK [None]
  - STEVENS-JOHNSON SYNDROME [None]
